FAERS Safety Report 8290778-1 (Version None)
Quarter: 2012Q2

REPORT INFORMATION
  Report Type: 
  Country: None (occurrence: None)
  Receive Date: 20120413
  Receipt Date: 20120413
  Transmission Date: 20120825
  Serious: Yes (Disabling, Other)
  Sender: FDA-Public Use
  Company Number: None

PATIENT
  Age: 61 Year
  Sex: Female
  Weight: 45.3597 kg

DRUGS (2)
  1. LEVOFLOXACIN [Suspect]
     Indication: SURGERY
     Dosage: 500MG 1 X DAY ORAL
     Route: 048
     Dates: start: 20120217, end: 20120201
  2. LEVOFLOXACIN [Suspect]
     Indication: INFECTION PROPHYLAXIS
     Dosage: 500MG 1 X DAY ORAL
     Route: 048
     Dates: start: 20120217, end: 20120201

REACTIONS (5)
  - TENDON DISORDER [None]
  - GAIT DISTURBANCE [None]
  - JOINT STIFFNESS [None]
  - HYPOAESTHESIA [None]
  - PAIN [None]
